FAERS Safety Report 25738886 (Version 2)
Quarter: 2025Q4

REPORT INFORMATION
  Report Type: Spontaneous
  Country: US (occurrence: US)
  Receive Date: 20250829
  Receipt Date: 20251203
  Transmission Date: 20260117
  Serious: No
  Sender: LUPIN
  Company Number: US-LUPIN PHARMACEUTICALS INC.-2025-07716

PATIENT
  Age: 57 Year

DRUGS (4)
  1. TOLVAPTAN [Suspect]
     Active Substance: TOLVAPTAN
     Indication: Congenital cystic kidney disease
     Dosage: 45 MG, QD (IN THE MORNING)
  2. TOLVAPTAN [Suspect]
     Active Substance: TOLVAPTAN
     Dosage: 45 MG, QD (IN THE MORNING)
  3. TOLVAPTAN [Suspect]
     Active Substance: TOLVAPTAN
     Indication: Congenital cystic kidney disease
     Dosage: 15 MG, QD (IN THE EVENING)
  4. TOLVAPTAN [Suspect]
     Active Substance: TOLVAPTAN
     Dosage: 15 MG, QD (IN THE EVENING)

REACTIONS (7)
  - Dry mouth [Unknown]
  - Dry skin [Unknown]
  - Pollakiuria [Unknown]
  - Pruritus [Unknown]
  - Thirst [Unknown]
  - Product dose omission issue [Unknown]
  - Sleep disorder [Unknown]
